FAERS Safety Report 7354495-4 (Version None)
Quarter: 2011Q1

REPORT INFORMATION
  Report Type: 
  Country: None (occurrence: None)
  Receive Date: 20110316
  Receipt Date: 20110308
  Transmission Date: 20110831
  Serious: Yes (Other)
  Sender: FDA-Public Use
  Company Number: JP-ASTELLAS-2011JP000494

PATIENT
  Sex: Female
  Weight: 65 kg

DRUGS (12)
  1. LULLAN [Concomitant]
     Indication: SCHIZOPHRENIA
     Dosage: 2 MG, UID/QD
     Route: 048
     Dates: start: 20100101
  2. PROGRAF [Suspect]
     Indication: RHEUMATOID ARTHRITIS
     Dosage: 1 MG, UID/QD
     Route: 048
     Dates: start: 20101215, end: 20101221
  3. GASPORT [Concomitant]
     Dosage: UNK
     Route: 048
     Dates: start: 20101021
  4. METHOTREXATE [Concomitant]
     Indication: RHEUMATOID ARTHRITIS
     Dosage: 10 MG, UID/QD
     Route: 048
     Dates: start: 20101021
  5. ACONINSUN [Concomitant]
     Indication: FIBROMYALGIA
     Dosage: 500 MG, TID
     Route: 048
     Dates: start: 20101021
  6. SAFILDINE EN [Concomitant]
     Indication: DEPRESSION
  7. FOLIAMIN [Concomitant]
     Dosage: 5 MG, UNKNOWN/D
     Route: 048
     Dates: start: 20101021
  8. ROZEREM [Concomitant]
     Indication: SCHIZOPHRENIA
     Dosage: 8 MG, UID/QD
     Route: 048
     Dates: start: 20100101
  9. SAFILDINE EN [Concomitant]
     Indication: SCHIZOPHRENIA
     Dosage: 500 MG, UID/QD
     Route: 048
  10. TOLEDOMIN [Concomitant]
     Indication: DEPRESSION
     Dosage: 50 MG, BID
     Route: 048
     Dates: start: 20101001
  11. LULLAN [Concomitant]
     Indication: DEPRESSION
  12. ROZEREM [Concomitant]
     Indication: DEPRESSION

REACTIONS (2)
  - THIRST [None]
  - WATER INTOXICATION [None]
